FAERS Safety Report 21373553 (Version 1)
Quarter: 2022Q3

REPORT INFORMATION
  Report Type: Spontaneous
  Country: JP (occurrence: JP)
  Receive Date: 20220925
  Receipt Date: 20220925
  Transmission Date: 20221027
  Serious: Yes (Other)
  Sender: FDA-Public Use
  Company Number: JP-SA-2022SA375378

PATIENT
  Age: 50 Year
  Sex: Female

DRUGS (7)
  1. DUPIXENT [Suspect]
     Active Substance: DUPILUMAB
     Indication: Dermatitis atopic
     Dosage: DAILY DOSE: 300 MG
     Route: 058
     Dates: start: 20211009
  2. GLYCOSAMINOGLYCANS [Concomitant]
     Active Substance: GLYCOSAMINOGLYCANS
     Indication: Dermatitis atopic
     Dosage: UNK
     Route: 065
     Dates: start: 20211009
  3. DESLORATADINE [Concomitant]
     Active Substance: DESLORATADINE
     Indication: Dermatitis atopic
     Dosage: UNK
     Route: 065
     Dates: start: 20211009
  4. ALLEGRA [Concomitant]
     Active Substance: FEXOFENADINE HYDROCHLORIDE
     Indication: Dermatitis atopic
     Dosage: UNK
     Route: 065
     Dates: start: 20211009
  5. DELGOCITINIB [Concomitant]
     Active Substance: DELGOCITINIB
     Indication: Dermatitis atopic
     Dosage: UNK
     Route: 061
     Dates: start: 20211009
  6. DEXAMETHASONE DIPROPIONATE [Concomitant]
     Active Substance: DEXAMETHASONE DIPROPIONATE
     Indication: Dermatitis atopic
     Dosage: UNK
     Route: 065
     Dates: start: 20211009
  7. ZINC OXIDE [Concomitant]
     Active Substance: ZINC OXIDE
     Indication: Dermatitis atopic
     Dosage: UNK
     Route: 061
     Dates: start: 20211009

REACTIONS (1)
  - Pustule [Recovered/Resolved]

NARRATIVE: CASE EVENT DATE: 20220910
